FAERS Safety Report 8101473-3 (Version None)
Quarter: 2012Q1

REPORT INFORMATION
  Report Type: 
  Country: None (occurrence: None)
  Receive Date: 20120129
  Receipt Date: 20111011
  Transmission Date: 20120608
  Serious: No
  Sender: FDA-Public Use
  Company Number: US-ABBOTT-11P-163-0863048-00

PATIENT
  Age: 35 Year
  Sex: Female

DRUGS (4)
  1. FOLIC ACID [Concomitant]
     Indication: PRODUCT USED FOR UNKNOWN INDICATION
     Dosage: 2 MG DAILY
     Route: 048
  2. METHOTREXATE [Concomitant]
     Indication: PRODUCT USED FOR UNKNOWN INDICATION
     Dosage: 2.5 MG / TABLET; 4 TABLETS ONCE WEEKLY
  3. HUMIRA [Suspect]
     Indication: PSORIASIS
     Dates: start: 20110401
  4. FOLIC ACID [Concomitant]
     Dosage: INCREASED TO 4MG ON DAY OF TAKING METHOTREXATE
     Route: 048

REACTIONS (1)
  - URTICARIA [None]
